FAERS Safety Report 10200750 (Version 1)
Quarter: 2014Q2

REPORT INFORMATION
  Report Type: Spontaneous
  Country: US (occurrence: None)
  Receive Date: 20140523
  Receipt Date: 20140523
  Transmission Date: 20141212
  Serious: Yes (Life-Threatening, Hospitalization, Other)
  Sender: FDA-Public Use
  Company Number: None

PATIENT
  Age: 75 Year
  Sex: Male
  Weight: 109.77 kg

DRUGS (1)
  1. AMIODARONE 200MG SANDOZ [Suspect]
     Indication: HEART RATE IRREGULAR
     Dosage: 1 PILL ONCE DAILY TAKEN BY MOUTH
     Route: 048

REACTIONS (10)
  - Chills [None]
  - Chromaturia [None]
  - Tremor [None]
  - Jaundice [None]
  - Liver function test abnormal [None]
  - Nausea [None]
  - Weight decreased [None]
  - Decreased appetite [None]
  - Fluid retention [None]
  - Thyroid function test normal [None]
